FAERS Safety Report 5933433-2 (Version None)
Quarter: 2008Q4

REPORT INFORMATION
  Report Type: 
  Country: None (occurrence: None)
  Receive Date: 20081023
  Receipt Date: 20081015
  Transmission Date: 20090506
  Serious: Yes (Hospitalization)
  Sender: FDA-Public Use
  Company Number: 2008SP019213

PATIENT
  Age: 55 Year
  Sex: Female
  Weight: 98.8842 kg

DRUGS (8)
  1. PEG-INTRON [Suspect]
     Indication: HEPATITIS C
     Dosage: 150 MCG;QW;SC, 120 MCG;QW;SC
     Route: 058
     Dates: start: 20080801
  2. PEG-INTRON [Suspect]
     Indication: HEPATITIS C
     Dosage: 150 MCG;QW;SC, 120 MCG;QW;SC
     Route: 058
     Dates: start: 20080805
  3. RIBAVIRIN [Suspect]
     Indication: HEPATITIS C
     Dosage: 1200 MG;QD;PO, 600 MG;QD;PO, 800 MG;QD;PO
     Route: 048
     Dates: start: 20080801
  4. RIBAVIRIN [Suspect]
     Indication: HEPATITIS C
     Dosage: 1200 MG;QD;PO, 600 MG;QD;PO, 800 MG;QD;PO
     Route: 048
     Dates: start: 20080805
  5. RIBAVIRIN [Suspect]
     Indication: HEPATITIS C
     Dosage: 1200 MG;QD;PO, 600 MG;QD;PO, 800 MG;QD;PO
     Route: 048
     Dates: start: 20080911
  6. BENICAR HCT [Concomitant]
  7. ZOLOFT [Concomitant]
  8. ALBUTEROL [Concomitant]

REACTIONS (30)
  - ALOPECIA [None]
  - ANAEMIA [None]
  - ANGER [None]
  - ANOREXIA [None]
  - APLASTIC ANAEMIA [None]
  - ASTHENIA [None]
  - BLOOD CALCIUM DECREASED [None]
  - BONE PAIN [None]
  - COW'S MILK INTOLERANCE [None]
  - DECREASED APPETITE [None]
  - DEHYDRATION [None]
  - DEPRESSION [None]
  - DIARRHOEA [None]
  - DIZZINESS [None]
  - FEELING ABNORMAL [None]
  - FLUID INTAKE REDUCED [None]
  - HYPERACUSIS [None]
  - HYPOPHAGIA [None]
  - INITIAL INSOMNIA [None]
  - INJECTION SITE ERYTHEMA [None]
  - INJECTION SITE RASH [None]
  - NAUSEA [None]
  - NEUTROPENIA [None]
  - PLATELET COUNT DECREASED [None]
  - PYREXIA [None]
  - RED BLOOD CELL COUNT DECREASED [None]
  - TEETH BRITTLE [None]
  - TOOTH DISORDER [None]
  - WEIGHT DECREASED [None]
  - WHITE BLOOD CELL COUNT DECREASED [None]
